FAERS Safety Report 6913430-0 (Version None)
Quarter: 2010Q3

REPORT INFORMATION
  Report Type: 
  Country: None (occurrence: None)
  Receive Date: 20100805
  Receipt Date: 20100805
  Transmission Date: 20110219
  Serious: No
  Sender: FDA-Public Use
  Company Number: None

PATIENT
  Sex: Female
  Weight: 71.6683 kg

DRUGS (2)
  1. CHLORDIAZEPOXIDE [Suspect]
     Indication: ALCOHOLISM
     Dosage: 25 MG 3 X DAILY ORAL
     Route: 048
     Dates: start: 20100717
  2. CHLORDIAZEPOXIDE [Suspect]
     Indication: ALCOHOLISM
     Dosage: 25 MG 3 X DAILY ORAL
     Route: 048
     Dates: start: 20100718

REACTIONS (3)
  - NIGHTMARE [None]
  - POOR QUALITY SLEEP [None]
  - PRODUCT QUALITY ISSUE [None]
